FAERS Safety Report 18585191 (Version 1)
Quarter: 2020Q4

REPORT INFORMATION
  Report Type: Spontaneous
  Country: US (occurrence: US)
  Receive Date: 20201204
  Receipt Date: 20201204
  Transmission Date: 20210114
  Serious: Yes (Other)
  Sender: FDA-Public Use
  Company Number: None

PATIENT
  Age: 31 Year
  Sex: Female
  Weight: 62.1 kg

DRUGS (21)
  1. ACETAMINOPHEN. [Concomitant]
     Active Substance: ACETAMINOPHEN
  2. TEMSIROLIMUS. [Concomitant]
     Active Substance: TEMSIROLIMUS
  3. COLACE [Concomitant]
     Active Substance: DOCUSATE SODIUM
  4. FAMOTIDINE. [Suspect]
     Active Substance: FAMOTIDINE
     Indication: PRODUCT USED FOR UNKNOWN INDICATION
     Dosage: ?          OTHER FREQUENCY:DAY 1,8,AND 15;?
     Route: 017
     Dates: start: 20200729, end: 20201204
  5. ETOPOSIDE 20 MG/ML [Concomitant]
     Active Substance: ETOPOSIDE
  6. CISPLATIN. [Concomitant]
     Active Substance: CISPLATIN
  7. MEKTOVI [Concomitant]
     Active Substance: BINIMETINIB
  8. FOSAPREPITANT DIMEGLUMINE. [Concomitant]
     Active Substance: FOSAPREPITANT DIMEGLUMINE
  9. MAGNESIUM OXIDE. [Concomitant]
     Active Substance: MAGNESIUM OXIDE
  10. PERCOCET [Concomitant]
     Active Substance: ACETAMINOPHEN\OXYCODONE HYDROCHLORIDE
  11. LIDOCREAM [Concomitant]
  12. ABRAXANE [Suspect]
     Active Substance: PACLITAXEL
     Indication: NEOPLASM MALIGNANT
     Dosage: ?          OTHER FREQUENCY:ON DAY 1, 8,AND 15;?
     Route: 017
     Dates: start: 20201116, end: 20201204
  13. AMMONIUM LACTATE 12% TOPICAL [Concomitant]
  14. BLEOMYCIN SULFATE [Concomitant]
     Active Substance: BLEOMYCIN SULFATE
  15. GABAPENTIN. [Concomitant]
     Active Substance: GABAPENTIN
  16. IBUPROFEN. [Concomitant]
     Active Substance: IBUPROFEN
  17. PALONOSETRON HCL [Concomitant]
     Active Substance: PALONOSETRON HYDROCHLORIDE
  18. OXYCODONE-ACETAMINOPHEN [Concomitant]
     Active Substance: ACETAMINOPHEN\OXYCODONE HYDROCHLORIDE
  19. PACLITAXEL. [Concomitant]
     Active Substance: PACLITAXEL
  20. ONDANSETRON [Concomitant]
     Active Substance: ONDANSETRON
  21. SENNA [Concomitant]
     Active Substance: SENNA LEAF\SENNOSIDES\SENNOSIDES A AND B

REACTIONS (1)
  - Disease progression [None]

NARRATIVE: CASE EVENT DATE: 20201204
